FAERS Safety Report 12190318 (Version 1)
Quarter: 2016Q1

REPORT INFORMATION
  Report Type: Spontaneous
  Country: US (occurrence: None)
  Receive Date: 20160317
  Receipt Date: 20160317
  Transmission Date: 20160526
  Serious: Yes (Other)
  Sender: FDA-Public Use
  Company Number: None

PATIENT
  Age: 58 Year
  Sex: Male

DRUGS (3)
  1. LYSINIPRIL [Concomitant]
  2. SIMVASTIN [Concomitant]
     Active Substance: SIMVASTATIN
  3. DYMISTA [Suspect]
     Active Substance: AZELASTINE HYDROCHLORIDE\FLUTICASONE PROPIONATE
     Indication: MULTIPLE ALLERGIES
     Dates: start: 20150302, end: 20150810

REACTIONS (2)
  - Abnormal behaviour [None]
  - Memory impairment [None]
